FAERS Safety Report 23479478 (Version 1)
Quarter: 2024Q1

REPORT INFORMATION
  Report Type: Spontaneous
  Country: EG (occurrence: EG)
  Receive Date: 20240205
  Receipt Date: 20240205
  Transmission Date: 20240409
  Serious: Yes (Hospitalization, Other)
  Sender: FDA-Public Use
  Company Number: EG-NOVOPROD-1168527

PATIENT
  Age: 68 Year
  Sex: Male
  Weight: 75 kg

DRUGS (5)
  1. INSULIN HUMAN [Suspect]
     Active Substance: INSULIN HUMAN
     Indication: Diabetes mellitus
     Dosage: 50 IU, QD (20 MORNING AND 30U NIGHT)
     Route: 058
     Dates: start: 2000
  2. INSULIN HUMAN [Suspect]
     Active Substance: INSULIN HUMAN
     Dosage: 85 IU, QD (35U AND 50U )
     Route: 058
  3. NOVORAPID [Suspect]
     Active Substance: INSULIN ASPART
     Indication: Product used for unknown indication
     Dosage: UNK 3 TIMES/DAY
  4. NITROMACK [Concomitant]
     Indication: Arterial disorder
     Dosage: 1 TABLET MORNING AND 1 TABLET NIGHT (2.5)
  5. ATORVAST [Concomitant]
     Indication: Hypercholesterolaemia
     Dosage: 40 MG, BID (1 TABLET MORNING AND 1 TABLET NIGHT)
     Dates: start: 2000

REACTIONS (3)
  - Cardiac operation [Unknown]
  - Coma [Unknown]
  - Hyperglycaemia [Recovered/Resolved]

NARRATIVE: CASE EVENT DATE: 20110101
